FAERS Safety Report 4367429-1 (Version None)
Quarter: 2004Q2

REPORT INFORMATION
  Report Type: 
  Country: None (occurrence: None)
  Receive Date: 20040528
  Receipt Date: 20040528
  Transmission Date: 20050107
  Serious: No
  Sender: FDA-Public Use
  Company Number: None

PATIENT
  Sex: Male

DRUGS (1)
  1. RESTASIS [Suspect]
     Dosage: 1 GTT OU BID

REACTIONS (2)
  - EYE INJURY [None]
  - PHARMACEUTICAL PRODUCT COMPLAINT [None]
